FAERS Safety Report 16885415 (Version 5)
Quarter: 2022Q1

REPORT INFORMATION
  Report Type: Spontaneous
  Country: US (occurrence: US)
  Receive Date: 20191004
  Receipt Date: 20220228
  Transmission Date: 20220423
  Serious: Yes (Hospitalization, Other)
  Sender: FDA-Public Use
  Company Number: US-SA-2019SA275134

PATIENT
  Age: 70 Year
  Sex: Female

DRUGS (2)
  1. KEVZARA [Suspect]
     Active Substance: SARILUMAB
     Indication: Rheumatoid arthritis
     Dosage: 200 MG, QOW
     Route: 058
     Dates: start: 201808, end: 2019
  2. KEVZARA [Suspect]
     Active Substance: SARILUMAB
     Indication: Rheumatoid factor
     Dosage: 200 MG, QOW
     Route: 058

REACTIONS (3)
  - Cataract [Unknown]
  - Nasopharyngitis [Unknown]
  - Product dose omission in error [Unknown]
